FAERS Safety Report 10120844 (Version 1)
Quarter: 2014Q2

REPORT INFORMATION
  Report Type: Report from Study
  Country: US (occurrence: US)
  Receive Date: 20140425
  Receipt Date: 20140425
  Transmission Date: 20141212
  Serious: Yes (Other)
  Sender: FDA-Public Use
  Company Number: US-BRISTOL-MYERS SQUIBB COMPANY-20650776

PATIENT
  Age: 23 Year
  Sex: Female
  Weight: 60 kg

DRUGS (1)
  1. IPILIMUMAB [Suspect]
     Indication: SQUAMOUS CELL CARCINOMA OF THE CERVIX
     Dates: start: 20140318

REACTIONS (1)
  - Arthralgia [Not Recovered/Not Resolved]
